FAERS Safety Report 24757421 (Version 1)
Quarter: 2024Q4

REPORT INFORMATION
  Report Type: Spontaneous
  Country: CA (occurrence: CA)
  Receive Date: 20241220
  Receipt Date: 20241220
  Transmission Date: 20250115
  Serious: Yes (Hospitalization)
  Sender: TEVA
  Company Number: CA-TEVA-VS-3277860

PATIENT
  Age: 69 Year
  Sex: Female

DRUGS (3)
  1. PERINDOPRIL [Suspect]
     Active Substance: PERINDOPRIL
     Indication: Product used for unknown indication
     Dosage: DOSE FORM :L NOT SPECIFIED
     Route: 048
  2. ASPIRIN [Suspect]
     Active Substance: ASPIRIN
     Indication: Product used for unknown indication
     Dosage: DOSE FORMM: NOT SPECIFIED
     Route: 048
  3. BISOPROLOL [Suspect]
     Active Substance: BISOPROLOL
     Indication: Product used for unknown indication
     Route: 048

REACTIONS (3)
  - Skin reaction [Recovered/Resolved]
  - Pruritus [Recovered/Resolved]
  - Skin exfoliation [Recovered/Resolved]
